FAERS Safety Report 21895260 (Version 1)
Quarter: 2023Q1

REPORT INFORMATION
  Report Type: Spontaneous
  Country: JP (occurrence: JP)
  Receive Date: 20230123
  Receipt Date: 20230123
  Transmission Date: 20230418
  Serious: Yes (Hospitalization, Other)
  Sender: FDA-Public Use
  Company Number: JP-002147023-NVSJ2022JP095538

PATIENT
  Sex: Male

DRUGS (1)
  1. SCEMBLIX [Suspect]
     Active Substance: ASCIMINIB HYDROCHLORIDE
     Indication: Chronic myeloid leukaemia
     Dosage: 20 MG
     Route: 048
     Dates: start: 20220721, end: 202211

REACTIONS (3)
  - Cardiac failure [Recovered/Resolved]
  - Electrocardiogram QT prolonged [Unknown]
  - Malaise [Unknown]

NARRATIVE: CASE EVENT DATE: 20220701
